FAERS Safety Report 16838928 (Version 5)
Quarter: 2020Q3

REPORT INFORMATION
  Report Type: Spontaneous
  Country: US (occurrence: US)
  Receive Date: 20190923
  Receipt Date: 20200716
  Transmission Date: 20201102
  Serious: Yes (Hospitalization, Other)
  Sender: FDA-Public Use
  Company Number: US-GLAXOSMITHKLINE-US-2017TSO00371

PATIENT
  Age: 60 Year
  Sex: Female

DRUGS (3)
  1. ZEJULA [Suspect]
     Active Substance: NIRAPARIB
     Dosage: 300 MG, QD
     Route: 048
     Dates: start: 20170505, end: 20191212
  2. LEVOTHYROXINE. [Concomitant]
     Active Substance: LEVOTHYROXINE
     Indication: PRODUCT USED FOR UNKNOWN INDICATION
     Dosage: UNK
  3. ZEJULA [Suspect]
     Active Substance: NIRAPARIB
     Indication: OVARIAN CANCER
     Dosage: 300 MG, QD
     Route: 048
     Dates: start: 20170501

REACTIONS (14)
  - Brain operation [Recovered/Resolved]
  - Blood creatinine increased [Recovering/Resolving]
  - Diarrhoea [Recovered/Resolved]
  - Carbohydrate antigen 125 increased [Unknown]
  - Brain scan abnormal [Unknown]
  - Disease recurrence [Unknown]
  - Dry skin [Not Recovered/Not Resolved]
  - Photosensitivity reaction [Not Recovered/Not Resolved]
  - Fear [Unknown]
  - Metastases to central nervous system [Recovering/Resolving]
  - Brain neoplasm [Recovering/Resolving]
  - Insomnia [Recovered/Resolved]
  - Pruritus [Not Recovered/Not Resolved]
  - Drug ineffective [Unknown]

NARRATIVE: CASE EVENT DATE: 201705
